FAERS Safety Report 9127192 (Version 1)
Quarter: 2013Q1

REPORT INFORMATION
  Report Type: Spontaneous
  Country: US (occurrence: US)
  Receive Date: 20130228
  Receipt Date: 20130228
  Transmission Date: 20140127
  Serious: No
  Sender: FDA-Public Use
  Company Number: US-GLAXOSMITHKLINE-A0960605A

PATIENT
  Age: 25 Year
  Sex: Female
  Weight: 124.1 kg

DRUGS (1)
  1. LAMICTAL [Suspect]
     Indication: BIPOLAR DISORDER
     Dosage: 100MG PER DAY
     Route: 048
     Dates: start: 201110, end: 20111226

REACTIONS (2)
  - Live birth [Unknown]
  - Exposure during pregnancy [Unknown]
